FAERS Safety Report 12429360 (Version 1)
Quarter: 2016Q2

REPORT INFORMATION
  Report Type: Spontaneous
  Country: JP (occurrence: JP)
  Receive Date: 20160602
  Receipt Date: 20160602
  Transmission Date: 20160815
  Serious: Yes (Hospitalization)
  Sender: FDA-Public Use
  Company Number: JP-JNJFOC-20160322292

PATIENT
  Age: 73 Year
  Sex: Male
  Weight: 50 kg

DRUGS (6)
  1. ZYLORIC [Concomitant]
     Active Substance: ALLOPURINOL
     Dosage: DAILY DOSE 200 MG
     Route: 048
  2. EPADEL [Suspect]
     Active Substance: ICOSAPENT
     Indication: PRODUCT USED FOR UNKNOWN INDICATION
     Dosage: DAILY DOSE 1800 MG
     Route: 048
  3. AMLODIN [Concomitant]
     Active Substance: AMLODIPINE BESYLATE
     Dosage: DAILY DOSE 5 MG
     Route: 048
  4. XARELTO [Suspect]
     Active Substance: RIVAROXABAN
     Indication: CEREBROVASCULAR ACCIDENT PROPHYLAXIS
     Dosage: 15 MG, QD
     Route: 048
     Dates: start: 201603
  5. OLMETEC [Concomitant]
     Active Substance: OLMESARTAN MEDOXOMIL
     Dosage: DAILY DOSE 20 MG
     Route: 048
  6. CRESTOR [Concomitant]
     Active Substance: ROSUVASTATIN CALCIUM
     Dosage: DAILY DOSE 5 MG
     Route: 048

REACTIONS (2)
  - Cerebral artery embolism [Recovered/Resolved with Sequelae]
  - Haemorrhagic infarction [Recovered/Resolved with Sequelae]

NARRATIVE: CASE EVENT DATE: 20160228
